FAERS Safety Report 17596834 (Version 2)
Quarter: 2021Q1

REPORT INFORMATION
  Report Type: Other
  Country: US (occurrence: US)
  Receive Date: 20200330
  Receipt Date: 20210318
  Transmission Date: 20210419
  Serious: Yes (Other)
  Sender: FDA-Public Use
  Company Number: US-ROCHE-2569725

PATIENT
  Sex: Male
  Weight: 88.98 kg

DRUGS (1)
  1. OCREVUS [Suspect]
     Active Substance: OCRELIZUMAB
     Indication: PRIMARY PROGRESSIVE MULTIPLE SCLEROSIS
     Dosage: UNKNOWN
     Route: 065
     Dates: start: 201912

REACTIONS (4)
  - Rash [Recovered/Resolved]
  - Infection [Recovered/Resolved]
  - External ear cellulitis [Recovered/Resolved]
  - Immunodeficiency [Unknown]
